FAERS Safety Report 6152212-7 (Version None)
Quarter: 2009Q2

REPORT INFORMATION
  Report Type: 
  Country: None (occurrence: None)
  Receive Date: 20090410
  Receipt Date: 20080619
  Transmission Date: 20091009
  Serious: No
  Sender: FDA-Public Use
  Company Number: US-ASTRAZENECA-2008UW04565

PATIENT
  Age: 66 Year
  Sex: Female
  Weight: 149.7 kg

DRUGS (9)
  1. TENORMIN [Suspect]
     Indication: HEART RATE INCREASED
     Dosage: 50 MG AM AND 25 MG PM
     Route: 048
  2. TENORMIN [Suspect]
     Indication: HYPERTENSION
     Dosage: 50 MG AM AND 25 MG PM
     Route: 048
  3. RYTHMOL [Concomitant]
  4. LASIX [Concomitant]
  5. ACTOS [Concomitant]
  6. LISINOPRIL [Concomitant]
  7. MINIPRESS [Concomitant]
  8. PROLIXIN [Concomitant]
  9. COUMADIN [Concomitant]

REACTIONS (2)
  - BLOOD PRESSURE INCREASED [None]
  - PRODUCT QUALITY ISSUE [None]
